FAERS Safety Report 11792794 (Version 1)
Quarter: 2015Q4

REPORT INFORMATION
  Report Type: Spontaneous
  Country: US (occurrence: None)
  Receive Date: 20151130
  Receipt Date: 20151130
  Transmission Date: 20160305
  Serious: Yes (Hospitalization)
  Sender: FDA-Public Use
  Company Number: 2015US-106800

PATIENT
  Age: 17 Year

DRUGS (1)
  1. PARACETAMOL (PARACETAMOL) UNKNOWN [Suspect]
     Active Substance: ACETAMINOPHEN
     Indication: PRODUCT USED FOR UNKNOWN INDICATION

REACTIONS (7)
  - Overdose [None]
  - Haemothorax [None]
  - Medical device complication [None]
  - Vena cava injury [None]
  - Multi-organ failure [None]
  - Haemodynamic instability [None]
  - Haemodialysis [None]
